FAERS Safety Report 9359824 (Version 7)
Quarter: 2013Q3

REPORT INFORMATION
  Report Type: Report from Study
  Country: US (occurrence: US)
  Receive Date: 20130621
  Receipt Date: 20130923
  Transmission Date: 20140515
  Serious: Yes (Hospitalization)
  Sender: FDA-Public Use
  Company Number: US-ROCHE-1237978

PATIENT
  Age: 62 Year
  Sex: Female
  Weight: 62.2 kg

DRUGS (12)
  1. TRASTUZUMAB [Suspect]
     Indication: BREAST CANCER
     Dosage: DATE OF LAST DOSE PRIOR TO SAE: 26/MAR/2013
     Route: 042
     Dates: start: 20130212, end: 20130410
  2. TAXOTERE [Suspect]
     Indication: BREAST CANCER
     Dosage: DATE OF LAST DOSE PRIOR TO SAE:26/MAR/2013
     Route: 042
     Dates: start: 20130212, end: 20130410
  3. CARBOPLATIN [Suspect]
     Indication: BREAST CANCER
     Dosage: DOSE: 6 AUC, DATE OF LAST DOSE PRIOR TO SAE: 26/MAR/2013
     Route: 042
     Dates: start: 20130212, end: 20130410
  4. XANAX [Concomitant]
     Route: 065
     Dates: start: 2003
  5. DILTIAZEM [Concomitant]
     Route: 065
     Dates: start: 2003
  6. NEXIUM [Concomitant]
     Route: 065
     Dates: start: 20130324
  7. ATIVAN [Concomitant]
     Route: 065
     Dates: start: 2003
  8. MEGACE ES [Concomitant]
     Dosage: DOSE: 625 MG/ML
     Route: 065
     Dates: start: 20130305
  9. CARAFATE [Concomitant]
     Dosage: DOSE: 110 MG/ML
     Route: 065
     Dates: start: 20130409
  10. LORTAB [Concomitant]
     Route: 065
     Dates: start: 20130201
  11. ULTRAM [Concomitant]
     Route: 065
     Dates: start: 20130212
  12. POTASSIUM GUAIACOLSULFONATE [Concomitant]
     Route: 065

REACTIONS (5)
  - Clostridium difficile colitis [Recovered/Resolved]
  - Colitis [Recovered/Resolved]
  - Gastroenteritis radiation [Recovered/Resolved]
  - Gastroenteritis [Recovered/Resolved]
  - Small intestinal obstruction [Not Recovered/Not Resolved]
